FAERS Safety Report 4935147-4 (Version None)
Quarter: 2006Q1

REPORT INFORMATION
  Report Type: 
  Country: None (occurrence: None)
  Receive Date: 20060302
  Receipt Date: 20060217
  Transmission Date: 20060701
  Serious: Yes (Other)
  Sender: FDA-Public Use
  Company Number: 2006025576

PATIENT
  Sex: Male

DRUGS (2)
  1. VIAGRA [Suspect]
     Indication: ILL-DEFINED DISORDER
  2. OXYCONTIN [Suspect]
     Indication: ILL-DEFINED DISORDER

REACTIONS (4)
  - ARM AMPUTATION [None]
  - DRUG INEFFECTIVE [None]
  - EXCITABILITY [None]
  - SELF-MEDICATION [None]
